FAERS Safety Report 8764821 (Version 1)
Quarter: 2012Q4

REPORT INFORMATION
  Report Type: Report from Study
  Country: US (occurrence: US)
  Receive Date: 20120831
  Receipt Date: 20120831
  Transmission Date: 20130627
  Serious: Yes (Hospitalization)
  Sender: FDA-Public Use
  Company Number: US-ROCHE-1109715

PATIENT
  Age: 48 Year
  Sex: Female
  Weight: 74 kg

DRUGS (5)
  1. AVASTIN [Suspect]
     Indication: BREAST CANCER
     Dosage: Dose: 10 mg/kg over 30-90 min, Date of last administration: 09/Jul/2010
     Dates: start: 20100303
  2. PACLITAXEL [Suspect]
     Indication: BREAST CANCER
     Dosage: Dose: 80 mg/m2 over 1 hr
     Route: 042
     Dates: start: 20100303, end: 20100512
  3. CARBOPLATIN [Suspect]
     Indication: BREAST CANCER
     Dosage: Dose: AUC 6 over 30 min
     Route: 042
     Dates: start: 20100303, end: 20100505
  4. DOXORUBICIN [Suspect]
     Indication: BREAST CANCER
     Dosage: Dose: 60 mg/m2/  over 5-10 min, Date of last administration: 09/Jul/2010
     Route: 042
     Dates: start: 20100303
  5. CYCLOPHOSPHAMIDE [Suspect]
     Indication: BREAST CANCER
     Dosage: Dose: 600 mg/m2 over 5-30 min, Date of last administration: 09/Jul/2010
     Route: 042
     Dates: start: 20100303

REACTIONS (4)
  - Haematuria [Recovered/Resolved]
  - Platelet count decreased [Recovered/Resolved]
  - Anaemia [Recovered/Resolved]
  - Proteinuria [Recovered/Resolved]
